FAERS Safety Report 17224712 (Version 1)
Quarter: 2020Q1

REPORT INFORMATION
  Report Type: Spontaneous
  Country: US (occurrence: US)
  Receive Date: 20191231
  Receipt Date: 20191231
  Transmission Date: 20200409
  Serious: Yes (Other)
  Sender: FDA-Public Use
  Company Number: None

PATIENT
  Age: 78 Year
  Sex: Female

DRUGS (1)
  1. LOMOTIL [Suspect]
     Active Substance: ATROPINE SULFATE\DIPHENOXYLATE HYDROCHLORIDE
     Indication: DIARRHOEA
     Route: 048

REACTIONS (6)
  - Chest pain [None]
  - Gastrointestinal pain [None]
  - Abdominal pain upper [None]
  - Condition aggravated [None]
  - Nausea [None]
  - Rash [None]

NARRATIVE: CASE EVENT DATE: 20191231
